FAERS Safety Report 23129374 (Version 1)
Quarter: 2023Q4

REPORT INFORMATION
  Report Type: Report from Study
  Country: US (occurrence: US)
  Receive Date: 20231031
  Receipt Date: 20231031
  Transmission Date: 20240109
  Serious: Yes (Hospitalization, Other)
  Sender: FDA-Public Use
  Company Number: US-ABBVIE-4304452

PATIENT
  Sex: Female

DRUGS (3)
  1. HUMIRA [Suspect]
     Active Substance: ADALIMUMAB
     Indication: Psoriasis
     Route: 058
     Dates: start: 20081001
  2. HUMIRA [Suspect]
     Active Substance: ADALIMUMAB
     Indication: Psoriatic arthropathy
     Route: 058
     Dates: start: 20210802
  3. HUMIRA [Suspect]
     Active Substance: ADALIMUMAB
     Route: 058
     Dates: start: 2023, end: 2023

REACTIONS (11)
  - Ovarian cyst [Unknown]
  - Nasopharyngitis [Unknown]
  - Cerebrovascular accident [Unknown]
  - Osteoarthritis [Unknown]
  - Biliary dilatation [Unknown]
  - Psoriatic arthropathy [Not Recovered/Not Resolved]
  - Memory impairment [Unknown]
  - Therapeutic response shortened [Unknown]
  - Arthralgia [Unknown]
  - Tumour marker increased [Unknown]
  - Uterine polyp [Unknown]

NARRATIVE: CASE EVENT DATE: 20080101
